FAERS Safety Report 5872018-3 (Version None)
Quarter: 2008Q3

REPORT INFORMATION
  Report Type: 
  Country: None (occurrence: None)
  Receive Date: 20080902
  Receipt Date: 20080825
  Transmission Date: 20090109
  Serious: Yes (Other)
  Sender: FDA-Public Use
  Company Number: S08-FRA-01566-01

PATIENT
  Age: 86 Year
  Sex: Female

DRUGS (9)
  1. MEMANTINE HCL [Suspect]
     Indication: DEMENTIA ALZHEIMER'S TYPE
     Dosage: SEE IMAGE
     Route: 048
     Dates: start: 20080101, end: 20080101
  2. MEMANTINE HCL [Suspect]
     Indication: DEMENTIA ALZHEIMER'S TYPE
     Dosage: SEE IMAGE
     Route: 048
     Dates: start: 20080101, end: 20080101
  3. MEMANTINE HCL [Suspect]
     Indication: DEMENTIA ALZHEIMER'S TYPE
     Dosage: SEE IMAGE
     Route: 048
     Dates: start: 20080101, end: 20080418
  4. MEMANTINE HCL [Suspect]
     Indication: DEMENTIA ALZHEIMER'S TYPE
     Dosage: SEE IMAGE
     Route: 048
     Dates: start: 20080419
  5. ARICEPT [Concomitant]
  6. STABLON (TIANEPTINE) (TIANEPTINE) [Concomitant]
  7. FORLAX (MACROGOL) (MACROGOL) [Concomitant]
  8. SOTALEX (SOTALOL HYDROCHLORIDE) (SOTALOL HYDROCHLORIDE) [Concomitant]
  9. DISOMINE (DIOSMIN) DIOSMINE) [Concomitant]

REACTIONS (2)
  - AGGRESSION [None]
  - DISORIENTATION [None]
